FAERS Safety Report 22616237 (Version 1)
Quarter: 2023Q2

REPORT INFORMATION
  Report Type: Spontaneous
  Country: US (occurrence: US)
  Receive Date: 20230619
  Receipt Date: 20230619
  Transmission Date: 20230721
  Serious: Yes (Other)
  Sender: FDA-Public Use
  Company Number: US-C B Fleet Co Inc-202305-US-001685

PATIENT
  Age: 5 Year

DRUGS (1)
  1. DRAMAMINE FOR KIDS [Suspect]
     Active Substance: DIMENHYDRINATE
     Indication: Motion sickness
     Dosage: 1 TAB
     Route: 048

REACTIONS (8)
  - Seizure [Recovered/Resolved]
  - Vomiting [Recovered/Resolved]
  - Heart rate increased [Recovered/Resolved]
  - Nausea [Recovered/Resolved]
  - Diarrhoea [Recovered/Resolved]
  - Headache [Recovered/Resolved]
  - Confusional state [Recovered/Resolved]
  - Somnolence [Recovering/Resolving]
